FAERS Safety Report 12686831 (Version 2)
Quarter: 2016Q3

REPORT INFORMATION
  Report Type: Report from Study
  Country: CO (occurrence: CO)
  Receive Date: 20160825
  Receipt Date: 20160825
  Transmission Date: 20161109
  Serious: Yes (Death, Hospitalization)
  Sender: FDA-Public Use
  Company Number: CO-ABBVIE-16P-036-1710484-00

PATIENT
  Age: 86 Year
  Sex: Male

DRUGS (1)
  1. ZEMPLAR [Suspect]
     Active Substance: PARICALCITOL
     Indication: HYPERPARATHYROIDISM SECONDARY
     Route: 048
     Dates: start: 20130611, end: 20160816

REACTIONS (2)
  - Myocardial infarction [Fatal]
  - Pneumonia [Fatal]

NARRATIVE: CASE EVENT DATE: 20160815
